FAERS Safety Report 20013154 (Version 5)
Quarter: 2023Q1

REPORT INFORMATION
  Report Type: Spontaneous
  Country: DE (occurrence: DE)
  Receive Date: 20211029
  Receipt Date: 20230217
  Transmission Date: 20230418
  Serious: Yes (Other)
  Sender: FDA-Public Use
  Company Number: DE-009507513-2110DEU002619

PATIENT
  Sex: Male

DRUGS (4)
  1. PEMBROLIZUMAB [Suspect]
     Active Substance: PEMBROLIZUMAB
     Indication: Tonsil cancer metastatic
     Dosage: 200 MILLIGRAM
     Dates: start: 20210819
  2. PEMBROLIZUMAB [Suspect]
     Active Substance: PEMBROLIZUMAB
     Dosage: 200 MILLIGRAM, 3RD DOSE
     Dates: start: 20210930, end: 20210930
  3. PEMBROLIZUMAB [Suspect]
     Active Substance: PEMBROLIZUMAB
     Dosage: 200 MILLIGRAM, 4TH DOSE
     Dates: start: 20211101, end: 20211101
  4. PEMBROLIZUMAB [Suspect]
     Active Substance: PEMBROLIZUMAB
     Dosage: UNK
     Dates: end: 202209

REACTIONS (18)
  - Paraneoplastic syndrome [Unknown]
  - Polyneuropathy [Unknown]
  - Malignant neoplasm progression [Unknown]
  - Polymyalgia rheumatica [Unknown]
  - Somnolence [Unknown]
  - Ill-defined disorder [Unknown]
  - C-reactive protein increased [Not Recovered/Not Resolved]
  - N-terminal prohormone brain natriuretic peptide increased [Not Recovered/Not Resolved]
  - Troponin T increased [Not Recovered/Not Resolved]
  - Cardiac disorder [Unknown]
  - Inadequate analgesia [Unknown]
  - Musculoskeletal stiffness [Unknown]
  - Myalgia [Unknown]
  - Fatigue [Unknown]
  - Myositis [Unknown]
  - Arthritis [Unknown]
  - Arthralgia [Unknown]
  - Product use issue [Unknown]

NARRATIVE: CASE EVENT DATE: 20210101
